FAERS Safety Report 5466125-7 (Version None)
Quarter: 2007Q3

REPORT INFORMATION
  Report Type: 
  Country: None (occurrence: None)
  Receive Date: 20070924
  Receipt Date: 20070913
  Transmission Date: 20080115
  Serious: Yes (Other)
  Sender: FDA-Public Use
  Company Number: US-AMGEN-US243379

PATIENT
  Age: 64 Year
  Sex: Female

DRUGS (2)
  1. EPOGEN [Suspect]
     Indication: ANAEMIA
     Dates: end: 20070801
  2. TESTOSTERONE [Concomitant]

REACTIONS (1)
  - ESSENTIAL THROMBOCYTHAEMIA [None]
